FAERS Safety Report 5342543-2 (Version None)
Quarter: 2007Q2

REPORT INFORMATION
  Report Type: 
  Country: None (occurrence: None)
  Receive Date: 20070416
  Receipt Date: 20070110
  Transmission Date: 20071010
  Serious: No
  Sender: FDA-Public Use
  Company Number: 2007SP000133

PATIENT
  Age: 68 Year
  Sex: Female
  Weight: 58.0604 kg

DRUGS (2)
  1. LUNESTA [Suspect]
     Indication: INSOMNIA
     Dosage: 1 MG; PRN; ORAL
     Route: 048
     Dates: start: 20070107, end: 20070108
  2. LUNESTA [Suspect]
     Indication: PAIN
     Dosage: 1 MG; PRN; ORAL
     Route: 048
     Dates: start: 20070107, end: 20070108

REACTIONS (1)
  - INSOMNIA [None]
